FAERS Safety Report 7461727-0 (Version None)
Quarter: 2011Q2

REPORT INFORMATION
  Report Type: 
  Country: None (occurrence: None)
  Receive Date: 20110506
  Receipt Date: 20110421
  Transmission Date: 20111010
  Serious: Yes (Hospitalization)
  Sender: FDA-Public Use
  Company Number: US-TYCO HEALTHCARE/MALLINCKRODT-T201100348

PATIENT
  Sex: Female

DRUGS (8)
  1. OPTIRAY 300 [Suspect]
     Indication: COMPUTERISED TOMOGRAM
     Dosage: 100 ML, SINGLE
     Route: 042
     Dates: start: 20110212, end: 20110212
  2. FLEXERIL [Concomitant]
  3. PRAVACHOL [Concomitant]
  4. FERROUS SULFATE TAB [Concomitant]
  5. METARAMINOL BITARTRATE [Concomitant]
  6. IMDUR [Concomitant]
  7. INSULIN [Concomitant]
  8. ZOLOFT [Concomitant]

REACTIONS (2)
  - BLOOD CREATININE INCREASED [None]
  - CHEST PAIN [None]
